FAERS Safety Report 8810402 (Version 1)
Quarter: 2012Q4

REPORT INFORMATION
  Report Type: 
  Country: US (occurrence: US)
  Receive Date: 20120926
  Receipt Date: 20120926
  Transmission Date: 20130627
  Serious: No
  Sender: FDA-Public Use
  Company Number: US-009507513-1209USA004133

PATIENT
  Sex: Male

DRUGS (3)
  1. VICTRELIS [Suspect]
     Indication: HEPATITIS C
     Dosage: UNK
     Dates: start: 20120427
  2. REBETOL [Suspect]
     Dosage: UNK
     Dates: start: 20120330
  3. PEGASYS [Concomitant]
     Dosage: UNK
     Dates: start: 20120330

REACTIONS (5)
  - Dizziness [Unknown]
  - Red blood cell count decreased [Unknown]
  - Decreased appetite [Unknown]
  - Asthenia [Unknown]
  - Abdominal discomfort [Unknown]
